FAERS Safety Report 9018249 (Version 1)
Quarter: 2013Q1

REPORT INFORMATION
  Report Type: Spontaneous
  Country: US (occurrence: None)
  Receive Date: 20130111
  Receipt Date: 20130111
  Transmission Date: 20140127
  Serious: Yes (Life-Threatening, Hospitalization)
  Sender: FDA-Public Use
  Company Number: None

PATIENT
  Age: 64 Year
  Sex: Male
  Weight: 90.7 kg

DRUGS (2)
  1. NAPROXEN [Suspect]
     Indication: ARTHRITIS
     Dosage: 375MG  TWICE DAILY  PO
     Route: 048
  2. WARFARIN [Suspect]
     Indication: STENT PLACEMENT
     Dosage: 2.5 MG  DAILY  PO
     Route: 048
     Dates: start: 201210, end: 201301

REACTIONS (2)
  - Epistaxis [None]
  - Rectal haemorrhage [None]
